FAERS Safety Report 7425989-8 (Version None)
Quarter: 2011Q2

REPORT INFORMATION
  Report Type: 
  Country: None (occurrence: None)
  Receive Date: 20110420
  Receipt Date: 20110419
  Transmission Date: 20111010
  Serious: Yes (Life-Threatening, Hospitalization, Other)
  Sender: FDA-Public Use
  Company Number: US-B.I. PHARMACEUTICALS,INC./RIDGEFIELD-2011-BP-02190BP

PATIENT
  Age: 86 Year
  Sex: Male
  Weight: 92.99 kg

DRUGS (8)
  1. LOSARTAN POTASSIUM [Concomitant]
  2. HYTRIN [Concomitant]
  3. DIGOXIN [Concomitant]
  4. OXYBUTYNIN [Concomitant]
  5. PACERONE [Concomitant]
  6. PRADAXA [Suspect]
     Indication: ATRIAL FIBRILLATION
     Dosage: 300 MG
     Dates: start: 20110124, end: 20110125
  7. LASIX [Concomitant]
  8. ARICEPT [Concomitant]

REACTIONS (1)
  - GASTROINTESTINAL HAEMORRHAGE [None]
